FAERS Safety Report 6887928-8 (Version None)
Quarter: 2010Q3

REPORT INFORMATION
  Report Type: 
  Country: None (occurrence: None)
  Receive Date: 20100730
  Receipt Date: 20100720
  Transmission Date: 20110219
  Serious: Yes (Hospitalization)
  Sender: FDA-Public Use
  Company Number: A0785681A

PATIENT
  Age: 60 Year
  Sex: Male
  Weight: 90.9 kg

DRUGS (8)
  1. AVANDIA [Suspect]
     Dosage: 2MG TWICE PER DAY
     Route: 048
     Dates: start: 20040101, end: 20071201
  2. IRBESARTAN [Concomitant]
  3. TRAZODONE [Concomitant]
  4. FELODIPINE [Concomitant]
  5. DIVALPROEX SODIUM [Concomitant]
  6. CITALOPRAM [Concomitant]
  7. OMEPRAZOLE [Concomitant]
  8. INSULIN [Concomitant]

REACTIONS (1)
  - CARDIAC FAILURE CONGESTIVE [None]
